FAERS Safety Report 7505426-5 (Version None)
Quarter: 2011Q2

REPORT INFORMATION
  Report Type: 
  Country: None (occurrence: None)
  Receive Date: 20110526
  Receipt Date: 20110513
  Transmission Date: 20111010
  Serious: No
  Sender: FDA-Public Use
  Company Number: PHHY2009EE05196

PATIENT
  Sex: Male

DRUGS (9)
  1. TASIGNA [Suspect]
     Dosage: UNK
     Dates: start: 20080829, end: 20080913
  2. AMOXICILLIN [Concomitant]
  3. OMEPRAZOLE [Concomitant]
     Dosage: UNK
     Dates: start: 20080913, end: 20080916
  4. TASIGNA [Suspect]
     Dosage: UNK
     Dates: start: 20081127, end: 20090211
  5. OMEPRAZOLE [Concomitant]
     Dosage: UNK
     Dates: start: 20081005, end: 20081018
  6. TASIGNA [Suspect]
     Dosage: UNK
     Dates: start: 20080917, end: 20081005
  7. TASIGNA [Suspect]
     Dosage: UNK
     Dates: start: 20081019, end: 20081120
  8. CLARITHROMYCIN [Concomitant]
  9. OMEPRAZOLE [Concomitant]
     Dosage: UNK
     Dates: start: 20090212

REACTIONS (3)
  - ABDOMINAL PAIN [None]
  - DYSPEPSIA [None]
  - HELICOBACTER TEST POSITIVE [None]
